FAERS Safety Report 14898784 (Version 1)
Quarter: 2018Q2

REPORT INFORMATION
  Report Type: Report from Study
  Country: US (occurrence: US)
  Receive Date: 20180515
  Receipt Date: 20180515
  Transmission Date: 20180711
  Serious: Yes (Other)
  Sender: FDA-Public Use
  Company Number: US-UCBSA-2017021835

PATIENT
  Sex: Female

DRUGS (3)
  1. TRILEPTAL [Concomitant]
     Active Substance: OXCARBAZEPINE
     Indication: PRODUCT USED FOR UNKNOWN INDICATION
     Dosage: UNK
  2. LEVETIRACETAM. [Suspect]
     Active Substance: LEVETIRACETAM
     Indication: PETIT MAL EPILEPSY
     Dosage: UNK
  3. ONFI [Concomitant]
     Active Substance: CLOBAZAM
     Indication: PETIT MAL EPILEPSY
     Dosage: UNK

REACTIONS (3)
  - Drug ineffective [Unknown]
  - Seizure [Unknown]
  - Abnormal behaviour [Unknown]
